FAERS Safety Report 15388060 (Version 2)
Quarter: 2019Q1

REPORT INFORMATION
  Report Type: Report from Study
  Country: None (occurrence: US)
  Receive Date: 20180915
  Receipt Date: 20190214
  Transmission Date: 20190417
  Serious: Yes (Other)
  Sender: FDA-Public Use
  Company Number: US-ABBVIE-18K-163-2433005-00

PATIENT
  Age: 56 Year
  Sex: Female

DRUGS (1)
  1. HUMIRA [Suspect]
     Active Substance: ADALIMUMAB
     Indication: RHEUMATOID ARTHRITIS
     Route: 058

REACTIONS (5)
  - Alopecia [Not Recovered/Not Resolved]
  - Injection site bruising [Unknown]
  - Cyst [Not Recovered/Not Resolved]
  - Injection site mass [Unknown]
  - Infected bite [Recovering/Resolving]

NARRATIVE: CASE EVENT DATE: 20180601
